FAERS Safety Report 16607160 (Version 1)
Quarter: 2019Q3

REPORT INFORMATION
  Report Type: Spontaneous
  Country: FR (occurrence: FR)
  Receive Date: 20190722
  Receipt Date: 20190722
  Transmission Date: 20191004
  Serious: Yes (Hospitalization, Other)
  Sender: FDA-Public Use
  Company Number: FR-GLAXOSMITHKLINE-FR2019129420

PATIENT
  Age: 46 Year
  Sex: Female
  Weight: 65 kg

DRUGS (1)
  1. LAMICTAL [Suspect]
     Active Substance: LAMOTRIGINE
     Indication: BIPOLAR DISORDER
     Dosage: 50 MG, QD
     Route: 048
     Dates: start: 20190528, end: 20190620

REACTIONS (7)
  - Sleep disorder [Recovering/Resolving]
  - Agitation [Recovering/Resolving]
  - Morbid thoughts [Recovering/Resolving]
  - Aggression [Recovering/Resolving]
  - Suicide attempt [Recovering/Resolving]
  - Back pain [Recovering/Resolving]
  - Eating disorder [Recovering/Resolving]

NARRATIVE: CASE EVENT DATE: 201906
